FAERS Safety Report 9336442 (Version 3)
Quarter: 2013Q4

REPORT INFORMATION
  Report Type: Report from Study
  Country: JP (occurrence: JP)
  Receive Date: 20130607
  Receipt Date: 20131115
  Transmission Date: 20140711
  Serious: Yes (Hospitalization)
  Sender: FDA-Public Use
  Company Number: JP-JNJFOC-20130210418

PATIENT
  Age: 72 Year
  Sex: Male
  Weight: 61 kg

DRUGS (20)
  1. STELARA [Suspect]
     Indication: PSORIASIS
     Route: 048
     Dates: start: 20120912, end: 20120912
  2. STELARA [Suspect]
     Indication: PSORIASIS
     Route: 048
     Dates: start: 20120620, end: 20120620
  3. STELARA [Suspect]
     Indication: PSORIASIS
     Route: 048
     Dates: start: 20120328, end: 20120328
  4. STELARA [Suspect]
     Indication: PSORIASIS
     Route: 048
     Dates: start: 20120104, end: 20120104
  5. STELARA [Suspect]
     Indication: PSORIASIS
     Route: 048
     Dates: start: 20111207, end: 20111207
  6. STELARA [Suspect]
     Indication: PSORIASIS
     Route: 048
  7. NIZORAL [Concomitant]
     Indication: SEBORRHOEIC DERMATITIS
     Route: 061
     Dates: start: 20121107
  8. ATELEC [Concomitant]
     Indication: HYPERTENSION
     Route: 048
     Dates: start: 20080319
  9. CARDENALIN [Concomitant]
     Indication: HYPERTENSION
     Route: 048
     Dates: start: 20110309
  10. EXFORGE [Concomitant]
     Indication: HYPERTENSION
     Route: 048
     Dates: start: 20110907
  11. KAYEXALATE [Concomitant]
     Indication: RENAL FAILURE CHRONIC
     Route: 048
     Dates: start: 20110112
  12. CRESTOR [Concomitant]
     Indication: HYPERLIPIDAEMIA
     Route: 048
     Dates: start: 20081022
  13. ZYLORIC [Concomitant]
     Indication: HYPERTENSION
     Route: 048
     Dates: start: 20100210
  14. AZEPTIN [Concomitant]
     Indication: PSORIASIS
     Route: 048
     Dates: start: 20121010, end: 20121106
  15. DERMOVATE [Concomitant]
     Indication: PSORIASIS
     Route: 061
  16. HEPARINOID [Concomitant]
     Indication: PSORIASIS
     Route: 061
     Dates: start: 20121010
  17. NERISONA [Concomitant]
     Indication: PSORIASIS
     Route: 061
     Dates: start: 20121010
  18. LOCOID [Concomitant]
     Indication: PSORIASIS
     Route: 061
     Dates: end: 20121106
  19. LOCOID [Concomitant]
     Indication: PSORIASIS
     Route: 061
     Dates: start: 20121107
  20. DERMOVATE [Concomitant]
     Indication: PSORIASIS
     Dosage: FOR SCALP
     Route: 061

REACTIONS (1)
  - Gastrointestinal haemorrhage [Recovering/Resolving]
